FAERS Safety Report 12629931 (Version 1)
Quarter: 2016Q3

REPORT INFORMATION
  Report Type: Spontaneous
  Country: US (occurrence: US)
  Receive Date: 20160808
  Receipt Date: 20160808
  Transmission Date: 20161109
  Serious: No
  Sender: FDA-Public Use
  Company Number: US-BAYER-2016-152914

PATIENT
  Sex: Female

DRUGS (6)
  1. AUBAGIO [Concomitant]
     Active Substance: TERIFLUNOMIDE
  2. ALEVE [Concomitant]
     Active Substance: NAPROXEN SODIUM
  3. AMPYRA [Concomitant]
     Active Substance: DALFAMPRIDINE
  4. BUPROPION. [Concomitant]
     Active Substance: BUPROPION
  5. MIRENA [Suspect]
     Active Substance: LEVONORGESTREL
     Dosage: 20 MG/24HR, CONT
     Route: 015
  6. LISINOPRIL. [Concomitant]
     Active Substance: LISINOPRIL

REACTIONS (5)
  - Diarrhoea [None]
  - Nausea [None]
  - Headache [Recovering/Resolving]
  - Pain [Recovering/Resolving]
  - Musculoskeletal chest pain [None]
